FAERS Safety Report 6214624-2 (Version None)
Quarter: 2009Q2

REPORT INFORMATION
  Report Type: 
  Country: None (occurrence: None)
  Receive Date: 20090604
  Receipt Date: 20090522
  Transmission Date: 20091009
  Serious: Yes (Death, Life-Threatening, Hospitalization, Other)
  Sender: FDA-Public Use
  Company Number: US-PFIZER INC-2005150062

PATIENT
  Sex: Male
  Weight: 73.4 kg

DRUGS (10)
  1. BLINDED *PLACEBO [Suspect]
     Indication: HIV INFECTION
     Dosage: UNK
     Route: 048
     Dates: start: 20050321, end: 20051017
  2. BLINDED MARAVIROC [Suspect]
     Indication: HIV INFECTION
     Dosage: UNK
     Route: 048
     Dates: start: 20050321, end: 20051017
  3. BACTRIM DS [Concomitant]
     Route: 048
     Dates: start: 20000101
  4. DIFLUCAN [Concomitant]
     Route: 048
     Dates: start: 20000101
  5. FAMVIR [Concomitant]
     Route: 048
     Dates: start: 20000101
  6. OXANDRIN [Concomitant]
     Route: 048
     Dates: start: 20000101
  7. TRUVADA [Concomitant]
     Route: 048
     Dates: start: 20050321
  8. VIDEX EC [Concomitant]
     Route: 048
     Dates: start: 20050321
  9. NORVIR [Concomitant]
     Route: 048
     Dates: start: 20030701
  10. FOSAMPRENAVIR [Concomitant]
     Route: 048
     Dates: start: 20050321, end: 20051102

REACTIONS (1)
  - ANAL CANCER [None]
